FAERS Safety Report 21267080 (Version 1)
Quarter: 2022Q3

REPORT INFORMATION
  Report Type: Spontaneous
  Country: US (occurrence: US)
  Receive Date: 20220829
  Receipt Date: 20220829
  Transmission Date: 20221027
  Serious: Yes (Hospitalization)
  Sender: FDA-Public Use
  Company Number: US-BRISTOL-MYERS SQUIBB COMPANY-2022-093683

PATIENT
  Age: 29 Year
  Sex: Female
  Weight: 72.7 kg

DRUGS (4)
  1. THALOMID [Suspect]
     Active Substance: THALIDOMIDE
     Indication: Type 2 lepra reaction
     Dosage: DOSE : 100 MG;     FREQ : EVERY NIGHT
     Route: 048
     Dates: start: 202112
  2. HYDROXYCHLOROQUINE [Concomitant]
     Active Substance: HYDROXYCHLOROQUINE
     Indication: Product used for unknown indication
     Dosage: 200 MG ONCE DAILY
     Route: 065
  3. RIFAMPIN [Concomitant]
     Active Substance: RIFAMPIN
     Indication: Product used for unknown indication
     Dosage: 300 MG 2 CAPSULES PER MONTH
     Route: 065
  4. MINOCYCLINE [Concomitant]
     Active Substance: MINOCYCLINE HYDROCHLORIDE
     Indication: Product used for unknown indication
     Dosage: 100 MG ONCE PER MONTH
     Route: 065

REACTIONS (4)
  - Hypoaesthesia [Unknown]
  - Dysarthria [Unknown]
  - Facial paresis [Unknown]
  - Asthenia [Unknown]

NARRATIVE: CASE EVENT DATE: 20220812
